FAERS Safety Report 5109479-3 (Version None)
Quarter: 2006Q3

REPORT INFORMATION
  Report Type: 
  Country: None (occurrence: None)
  Receive Date: 20060918
  Receipt Date: 20060904
  Transmission Date: 20061208
  Serious: Yes (Hospitalization)
  Sender: FDA-Public Use
  Company Number: 2006100546

PATIENT
  Age: 85 Year
  Sex: Male

DRUGS (3)
  1. ZYRTEC [Suspect]
     Indication: PRURITUS
     Dosage: 10 MG, ORAL
     Route: 048
     Dates: start: 20060101
  2. AZOSEMIDE (AZOSEMIDE) [Concomitant]
  3. AMLODIPINE [Concomitant]

REACTIONS (2)
  - GINGIVAL BLEEDING [None]
  - THROMBOCYTOPENIC PURPURA [None]
